FAERS Safety Report 6257312-9 (Version None)
Quarter: 2009Q3

REPORT INFORMATION
  Report Type: 
  Country: None (occurrence: None)
  Receive Date: 20090706
  Receipt Date: 20090623
  Transmission Date: 20100115
  Serious: Yes (Life-Threatening, Other)
  Sender: FDA-Public Use
  Company Number: DE-ROCHE-638614

PATIENT
  Sex: Male

DRUGS (4)
  1. MYCOPHENOLATE MOFETIL [Suspect]
     Indication: LIVER TRANSPLANT
     Dosage: FREQUENCY: PER DAY.
     Route: 042
     Dates: start: 20090530, end: 20090602
  2. BLINDED BELATACEPT [Suspect]
     Indication: LIVER TRANSPLANT
     Route: 042
     Dates: start: 20090530, end: 20090602
  3. BLINDED BASILIXIMAB [Suspect]
     Indication: LIVER TRANSPLANT
     Route: 042
     Dates: start: 20090529, end: 20090602
  4. CORTICOSTEROIDS [Suspect]
     Indication: LIVER TRANSPLANT
     Route: 065
     Dates: start: 20090529, end: 20090602

REACTIONS (3)
  - GRAFT LOSS [None]
  - HEPATIC ENZYME INCREASED [None]
  - RENAL FAILURE [None]
